FAERS Safety Report 7690214-X (Version None)
Quarter: 2011Q3

REPORT INFORMATION
  Report Type: 
  Country: None (occurrence: None)
  Receive Date: 20110812
  Receipt Date: 20110729
  Transmission Date: 20111222
  Serious: Yes (Life-Threatening)
  Sender: FDA-Public Use
  Company Number: TCI2011A04193

PATIENT
  Age: 64 Year
  Sex: Male

DRUGS (11)
  1. AMARYL [Concomitant]
  2. COMELIAN (DILAZEP DIHYDROCHLORIDE) [Concomitant]
  3. IRBETAN (IRBESARTAN) [Concomitant]
  4. ACTOS [Suspect]
     Indication: DIABETES MELLITUS
     Dosage: 15 MG (15 MG, 1 IN 1 D)PER ORAL
     Route: 048
     Dates: start: 20090120, end: 20090610
  5. ACTOS [Suspect]
     Indication: DIABETES MELLITUS
     Dosage: 15 MG (15 MG, 1 IN 1 D)PER ORAL
     Route: 048
     Dates: start: 20090829, end: 20100118
  6. CRESTOR [Concomitant]
  7. URALYT (SODIUM CITRATE ACID, POTASSIUM CITRATE) [Concomitant]
  8. ALLOPURINOL [Concomitant]
  9. METFORMIN HYDROCHLORIDE [Concomitant]
  10. LIVALO (ITAVASTATIN CALCIUM) [Concomitant]
  11. GLUCOBAY [Concomitant]

REACTIONS (3)
  - MALIGNANT NEOPLASM OF RENAL PELVIS [None]
  - HAEMATURIA [None]
  - OEDEMA [None]
